FAERS Safety Report 21884202 (Version 1)
Quarter: 2023Q1

REPORT INFORMATION
  Report Type: Spontaneous
  Country: KR (occurrence: KR)
  Receive Date: 20230119
  Receipt Date: 20230119
  Transmission Date: 20230418
  Serious: Yes (Hospitalization, Other)
  Sender: FDA-Public Use
  Company Number: KR-ASTELLAS-2023US001560

PATIENT
  Age: 33 Year
  Sex: Female

DRUGS (6)
  1. TACROLIMUS [Suspect]
     Active Substance: TACROLIMUS
     Indication: Renal transplant
     Dosage: 0.1 MG/KG, TWICE DAILY
     Route: 048
     Dates: start: 2022
  2. TACROLIMUS [Suspect]
     Active Substance: TACROLIMUS
     Dosage: UNK UNK, UNKNOWN FREQ. (ADJUSTED DOSE)
     Route: 048
  3. TACROLIMUS [Suspect]
     Active Substance: TACROLIMUS
     Dosage: UNK UNK, UNKNOWN FREQ. (REDUCED DOSE)
     Route: 048
  4. PREDNISOLONE [Concomitant]
     Active Substance: PREDNISOLONE
     Indication: Renal transplant
     Dosage: 10 MG, ONCE DAILY (3 WEEKS AFTER TRANSPLANTATION )
     Route: 048
     Dates: start: 2022
  5. MYCOPHENOLATE MOFETIL [Concomitant]
     Active Substance: MYCOPHENOLATE MOFETIL
     Indication: Renal transplant
     Route: 065
     Dates: start: 2022
  6. MYCOPHENOLATE MOFETIL [Concomitant]
     Active Substance: MYCOPHENOLATE MOFETIL
     Dosage: UNK UNK, UNKNOWN FREQ. (ADJUSTED DOSE)
     Route: 065
     Dates: start: 2022

REACTIONS (4)
  - Malacoplakia [Recovered/Resolved]
  - Escherichia urinary tract infection [Recovering/Resolving]
  - Escherichia infection [Recovering/Resolving]
  - Cytomegalovirus urinary tract infection [Recovering/Resolving]

NARRATIVE: CASE EVENT DATE: 20220101
